FAERS Safety Report 16998415 (Version 1)
Quarter: 2019Q4

REPORT INFORMATION
  Report Type: Spontaneous
  Country: US (occurrence: US)
  Receive Date: 20191106
  Receipt Date: 20191106
  Transmission Date: 20200122
  Serious: Yes (Life-Threatening, Hospitalization, Other)
  Sender: FDA-Public Use
  Company Number: US-STRIDES ARCOLAB LIMITED-2019SP011087

PATIENT
  Age: 45 Year
  Sex: Female

DRUGS (1)
  1. VANCOMYCIN [Suspect]
     Active Substance: VANCOMYCIN
     Indication: ARTHRITIS BACTERIAL
     Dosage: UNK, VANCOMYCIN-IMPREGNATED SPACER
     Route: 042

REACTIONS (7)
  - Septic shock [Unknown]
  - Liver function test increased [Unknown]
  - Drug reaction with eosinophilia and systemic symptoms [Unknown]
  - Pyrexia [Unknown]
  - Multiple organ dysfunction syndrome [Unknown]
  - Eosinophilia [Unknown]
  - Rash erythematous [Unknown]
